FAERS Safety Report 19930052 (Version 4)
Quarter: 2022Q2

REPORT INFORMATION
  Report Type: Report from Study
  Country: JP (occurrence: None)
  Receive Date: 20211007
  Receipt Date: 20220405
  Transmission Date: 20220720
  Serious: Yes (Death, Hospitalization)
  Sender: FDA-Public Use
  Company Number: JP-MERCK HEALTHCARE KGAA-9249901

PATIENT
  Age: 78 Year
  Sex: Male
  Weight: 57 kg

DRUGS (5)
  1. BAVENCIO [Suspect]
     Active Substance: AVELUMAB
     Indication: Metastatic renal cell carcinoma
     Route: 041
     Dates: start: 20201110, end: 20201110
  2. BAVENCIO [Suspect]
     Active Substance: AVELUMAB
     Route: 041
     Dates: start: 20201124, end: 20210126
  3. AXITINIB [Concomitant]
     Active Substance: AXITINIB
     Indication: Metastatic renal cell carcinoma
     Dates: start: 20201119, end: 20210125
  4. ACETAMINOPHEN [Concomitant]
     Active Substance: ACETAMINOPHEN
     Indication: Premedication
     Route: 048
     Dates: start: 20201110, end: 20210126
  5. DIPHENHYDRAMINE [Concomitant]
     Active Substance: DIPHENHYDRAMINE
     Indication: Premedication
     Route: 048
     Dates: start: 20201110, end: 20210126

REACTIONS (2)
  - Adverse event [Fatal]
  - Condition aggravated [Unknown]
